FAERS Safety Report 23827571 (Version 1)
Quarter: 2024Q2

REPORT INFORMATION
  Report Type: Spontaneous
  Country: US (occurrence: None)
  Receive Date: 20240507
  Receipt Date: 20240507
  Transmission Date: 20240717
  Serious: Yes (Hospitalization)
  Sender: FDA-Public Use
  Company Number: US-ROCHE-3555386

PATIENT
  Age: 70 Year
  Sex: Male
  Weight: 95.3 kg

DRUGS (2)
  1. TNKASE [Suspect]
     Active Substance: TENECTEPLASE
     Indication: Aphasia
     Dosage: 24.5 MG DOSE AT 607 PM ;ONGOING: NO
     Route: 042
     Dates: start: 20240422
  2. TNKASE [Suspect]
     Active Substance: TENECTEPLASE
     Indication: Dysarthria

REACTIONS (3)
  - Haemorrhagic transformation stroke [Unknown]
  - Haemorrhagic transformation stroke [Unknown]
  - Off label use [Unknown]

NARRATIVE: CASE EVENT DATE: 20240422
